FAERS Safety Report 8472730-6 (Version None)
Quarter: 2012Q2

REPORT INFORMATION
  Report Type: 
  Country: None (occurrence: None)
  Receive Date: 20120627
  Receipt Date: 20120622
  Transmission Date: 20120825
  Serious: Yes (Death, Other)
  Sender: FDA-Public Use
  Company Number: US-CELGENEUS-163-21880-12063363

PATIENT

DRUGS (6)
  1. REVLIMID [Suspect]
     Route: 048
  2. REVLIMID [Suspect]
     Dosage: 10MG-25MG
     Route: 048
  3. REVLIMID [Suspect]
     Dosage: 50 MILLIGRAM
     Route: 048
  4. REVLIMID [Suspect]
     Dosage: 10MG-25MG
     Route: 048
  5. CYTARABINE [Suspect]
     Dosage: 1.5 MILLIGRAM/SQ. METER
     Route: 065
  6. CYTARABINE [Suspect]
     Dosage: 10 MILLIGRAM
     Route: 065

REACTIONS (12)
  - RASH MACULO-PAPULAR [None]
  - ADVERSE EVENT [None]
  - FATIGUE [None]
  - NAUSEA [None]
  - RASH [None]
  - DECREASED APPETITE [None]
  - ASPARTATE AMINOTRANSFERASE INCREASED [None]
  - BLOOD BILIRUBIN INCREASED [None]
  - NEUTROPENIA [None]
  - VOMITING [None]
  - THROMBOCYTOPENIA [None]
  - ANAEMIA [None]
